FAERS Safety Report 4844008-0 (Version None)
Quarter: 2005Q4

REPORT INFORMATION
  Report Type: 
  Country: None (occurrence: None)
  Receive Date: 20051202
  Receipt Date: 20050916
  Transmission Date: 20060501
  Serious: No
  Sender: FDA-Public Use
  Company Number: US-GLAXOSMITHKLINE-A0574521A

PATIENT
  Age: 48 Year
  Sex: Male

DRUGS (4)
  1. AUGMENTIN XR [Suspect]
     Indication: ACUTE SINUSITIS
     Dosage: 1000MG TWICE PER DAY
     Route: 048
     Dates: start: 20050908
  2. WELLBUTRIN [Suspect]
     Indication: DEPRESSION
     Route: 048
  3. NASONEX [Concomitant]
  4. HYZAAR [Concomitant]

REACTIONS (1)
  - DRUG SCREEN POSITIVE [None]
